FAERS Safety Report 19502719 (Version 1)
Quarter: 2021Q3

REPORT INFORMATION
  Report Type: Spontaneous
  Country: DE (occurrence: DE)
  Receive Date: 20210707
  Receipt Date: 20210707
  Transmission Date: 20211014
  Serious: Yes (Hospitalization)
  Sender: FDA-Public Use
  Company Number: DE-PFIZER INC-2021770575

PATIENT
  Age: 82 Year
  Sex: Male
  Weight: 72 kg

DRUGS (7)
  1. METOPROLOL. [Concomitant]
     Active Substance: METOPROLOL
     Dosage: 23.75 MG, 2X/DAY
     Route: 048
  2. FRAGMIN P FORTE [Suspect]
     Active Substance: DALTEPARIN SODIUM
     Dosage: 5000 IU, 1X/DAY
     Route: 058
  3. TRAMADOL. [Concomitant]
     Active Substance: TRAMADOL
     Dosage: 4 DF, 4X/DAY
     Route: 048
  4. RAMIPRIL. [Concomitant]
     Active Substance: RAMIPRIL
     Dosage: 1.25 MG, 2X/DAY
     Route: 048
  5. ACETYLCYSTEIN [Suspect]
     Active Substance: ACETYLCYSTEINE
     Dosage: 100 MG, 1X/DAY
     Route: 048
  6. METAMIZOLE [Concomitant]
     Active Substance: METAMIZOLE
     Dosage: 40 MG, 4X/DAY
     Route: 048
  7. TIOBLIS [Concomitant]
     Active Substance: ATORVASTATIN CALCIUM\EZETIMIBE
     Dosage: 1 DF, 1X/DAY
     Route: 048

REACTIONS (3)
  - Bladder pain [Unknown]
  - Bladder tamponade [Unknown]
  - Haematuria [Unknown]
